FAERS Safety Report 11151745 (Version 2)
Quarter: 2015Q2

REPORT INFORMATION
  Report Type: Spontaneous
  Country: US (occurrence: None)
  Receive Date: 20150528
  Receipt Date: 20150603
  Transmission Date: 20150821
  Serious: Yes (Other)
  Sender: FDA-Public Use
  Company Number: 2015SCAL000221

PATIENT
  Age: 66 Year
  Sex: Female

DRUGS (4)
  1. BENZTROPINE (BENZATROPINE MESILATE) [Concomitant]
     Active Substance: BENZTROPINE MESYLATE
  2. DONEPEZIL HYDROCHLORIDE (DONEPEZIL HYDROCHLORIDE) UNKNOWN [Suspect]
     Active Substance: DONEPEZIL HYDROCHLORIDE
     Indication: PRODUCT USED FOR UNKNOWN INDICATION
     Dosage: LESS THAN 3 WEEKS
  3. HALOPERIDOL (HALOPERIDOL) (HALOPERIDOL) [Suspect]
     Active Substance: HALOPERIDOL
     Indication: SCHIZOPHRENIA
     Dosage: LESS THAN 3 WEEKS
  4. OLANZAPINE (OLANZAPINE) [Suspect]
     Active Substance: OLANZAPINE
     Indication: SCHIZOPHRENIA

REACTIONS (2)
  - Neuroleptic malignant syndrome [None]
  - Drug interaction [None]
